FAERS Safety Report 10246396 (Version 1)
Quarter: 2014Q2

REPORT INFORMATION
  Report Type: Spontaneous
  Country: US (occurrence: US)
  Receive Date: 20140619
  Receipt Date: 20140619
  Transmission Date: 20141212
  Serious: No
  Sender: FDA-Public Use
  Company Number: US-PFIZER INC-2014165581

PATIENT
  Sex: Male

DRUGS (4)
  1. LYRICA [Suspect]
     Dosage: UNK
  2. NEURONTIN [Suspect]
     Dosage: UNK
  3. CELEBREX [Suspect]
     Dosage: UNK
  4. VIAGRA [Suspect]
     Dosage: UNK

REACTIONS (4)
  - Bradyphrenia [Unknown]
  - Somnolence [Unknown]
  - Paraesthesia [Unknown]
  - Burning sensation [Unknown]
